FAERS Safety Report 5018558-0 (Version None)
Quarter: 2006Q2

REPORT INFORMATION
  Report Type: 
  Country: None (occurrence: None)
  Receive Date: 20060414
  Receipt Date: 20051221
  Transmission Date: 20061013
  Serious: No
  Sender: FDA-Public Use
  Company Number: 2005SP004475

PATIENT
  Age: 29 Year
  Sex: Female
  Weight: 52.1637 kg

DRUGS (5)
  1. LUNESTA [Suspect]
     Indication: DEPRESSION
     Dosage: 3 MG;HS;ORAL
     Route: 048
     Dates: start: 20051219
  2. LUNESTA [Suspect]
     Indication: INSOMNIA
     Dosage: 3 MG;HS;ORAL
     Route: 048
     Dates: start: 20051219
  3. ANTI-ANXIETY MEDICATION [Concomitant]
  4. ANTI-DEPRESSION [Concomitant]
  5. AMBIEN [Concomitant]

REACTIONS (1)
  - MIDDLE INSOMNIA [None]
